FAERS Safety Report 15332028 (Version 1)
Quarter: 2018Q3

REPORT INFORMATION
  Report Type: Spontaneous
  Country: IT (occurrence: IT)
  Receive Date: 20180829
  Receipt Date: 20180829
  Transmission Date: 20181010
  Serious: Yes (Other)
  Sender: FDA-Public Use
  Company Number: PHHY2018IT082368

PATIENT
  Age: 46 Year
  Sex: Female

DRUGS (12)
  1. PACLITAX NAB [Suspect]
     Active Substance: PACLITAXEL
     Indication: METASTASES TO PLEURA
     Dosage: UNK
     Route: 065
  2. PACLITAX NAB [Suspect]
     Active Substance: PACLITAXEL
     Indication: METASTASES TO SKIN
  3. ZOLEDRONIC ACID [Suspect]
     Active Substance: ZOLEDRONIC ACID
     Indication: METASTASES TO LYMPH NODES
  4. ZOLEDRONIC ACID [Suspect]
     Active Substance: ZOLEDRONIC ACID
     Indication: METASTASES TO BONE
  5. ZOLEDRONIC ACID [Suspect]
     Active Substance: ZOLEDRONIC ACID
     Indication: METASTASES TO PLEURA
     Dosage: UNK
     Route: 065
  6. PACLITAX NAB [Suspect]
     Active Substance: PACLITAXEL
     Indication: BREAST CANCER
  7. ZOLEDRONIC ACID [Suspect]
     Active Substance: ZOLEDRONIC ACID
     Indication: METASTASES TO LIVER
  8. ZOLEDRONIC ACID [Suspect]
     Active Substance: ZOLEDRONIC ACID
     Indication: METASTASES TO SKIN
  9. PACLITAX NAB [Suspect]
     Active Substance: PACLITAXEL
     Indication: METASTASES TO LIVER
  10. PACLITAX NAB [Suspect]
     Active Substance: PACLITAXEL
     Indication: METASTASES TO BONE
  11. ZOLEDRONIC ACID [Suspect]
     Active Substance: ZOLEDRONIC ACID
     Indication: BREAST CANCER
  12. PACLITAX NAB [Suspect]
     Active Substance: PACLITAXEL
     Indication: METASTASES TO LYMPH NODES

REACTIONS (4)
  - Neuropathy peripheral [Unknown]
  - Alopecia [Unknown]
  - Metastases to skin [Unknown]
  - Malignant neoplasm progression [Unknown]
